FAERS Safety Report 8445409-4 (Version None)
Quarter: 2012Q2

REPORT INFORMATION
  Report Type: 
  Country: None (occurrence: None)
  Receive Date: 20120618
  Receipt Date: 20120613
  Transmission Date: 20120825
  Serious: Yes (Life-Threatening, Hospitalization, Disabling)
  Sender: FDA-Public Use
  Company Number: NO-PFIZER INC-2012131052

PATIENT
  Age: 50 Year
  Sex: Female

DRUGS (2)
  1. TWINRIX [Concomitant]
     Indication: IMMUNISATION
     Dosage: SINGLE DOSE
     Dates: start: 20110622, end: 20110622
  2. ZITHROMAX [Suspect]
     Indication: PROPHYLAXIS
     Dosage: 500 MG, 1X/DAY FOR 3 DAYS
     Dates: start: 20110621

REACTIONS (1)
  - CARDIAC ARREST [None]
